FAERS Safety Report 6692784-7 (Version None)
Quarter: 2010Q2

REPORT INFORMATION
  Report Type: 
  Country: None (occurrence: None)
  Receive Date: 20100412
  Receipt Date: 20100310
  Transmission Date: 20101027
  Serious: Yes (Hospitalization)
  Sender: FDA-Public Use
  Company Number: OMX-2010-00012

PATIENT
  Age: 44 Year
  Sex: Female

DRUGS (2)
  1. EVITHROM [Suspect]
     Indication: SYRINGE ISSUE
  2. SURGIFLOW [Suspect]

REACTIONS (4)
  - BRADYCARDIA [None]
  - CARDIAC ARREST [None]
  - HYPOTENSION [None]
  - POST PROCEDURAL COMPLICATION [None]
